FAERS Safety Report 20033767 (Version 1)
Quarter: 2021Q4

REPORT INFORMATION
  Report Type: Report from Study
  Country: JP (occurrence: JP)
  Receive Date: 20211104
  Receipt Date: 20211104
  Transmission Date: 20220303
  Serious: Yes (Other)
  Sender: FDA-Public Use
  Company Number: JP-TEVA-2021-JP-1972500

PATIENT
  Age: 82 Year
  Sex: Male

DRUGS (1)
  1. IMATINIB [Suspect]
     Active Substance: IMATINIB
     Indication: Chronic myeloid leukaemia
     Route: 065

REACTIONS (1)
  - Lacunar infarction [Unknown]
